FAERS Safety Report 7954222-3 (Version None)
Quarter: 2011Q4

REPORT INFORMATION
  Report Type: 
  Country: None (occurrence: None)
  Receive Date: 20111202
  Receipt Date: 20111201
  Transmission Date: 20120403
  Serious: Yes (Death, Hospitalization)
  Sender: FDA-Public Use
  Company Number: US-ABBOTT-11P-163-0879842-00

PATIENT
  Sex: Female
  Weight: 67.646 kg

DRUGS (4)
  1. HUMIRA [Suspect]
     Indication: RHEUMATOID ARTHRITIS
     Dates: end: 20111121
  2. CALCIUM [Concomitant]
     Indication: MINERAL SUPPLEMENTATION
  3. METFORMIN HCL [Concomitant]
     Indication: TYPE 2 DIABETES MELLITUS
  4. RESTASIS [Concomitant]
     Indication: EYE DISORDER
     Route: 047

REACTIONS (7)
  - PNEUMONIA [None]
  - UNRESPONSIVE TO STIMULI [None]
  - PYREXIA [None]
  - HYPOPNOEA [None]
  - LUNG DISORDER [None]
  - PULMONARY FIBROSIS [None]
  - MOBILITY DECREASED [None]
